FAERS Safety Report 24570374 (Version 1)
Quarter: 2024Q4

REPORT INFORMATION
  Report Type: Other
  Country: CN (occurrence: CN)
  Receive Date: 20241031
  Receipt Date: 20241031
  Transmission Date: 20250115
  Serious: Yes (Hospitalization)
  Sender: KARYOPHARM THERAPEUTICS
  Company Number: CN-ANTENGENE-20241002841

PATIENT

DRUGS (4)
  1. XPOVIO [Suspect]
     Active Substance: SELINEXOR
     Indication: Lymphoma
     Dosage: 20 MG, QD
     Route: 048
     Dates: start: 20240920, end: 20240920
  2. XPOVIO [Suspect]
     Active Substance: SELINEXOR
     Dosage: 20 MG, QD
     Route: 048
     Dates: start: 20240923, end: 20240923
  3. SINTILIMAB [Suspect]
     Active Substance: SINTILIMAB
     Indication: Lymphoma
     Dosage: 200 MG, SINGLE
     Route: 042
     Dates: start: 20240924, end: 20240924
  4. RITUXIMAB [Suspect]
     Active Substance: RITUXIMAB
     Indication: Lymphoma
     Dosage: 600 MG, SINGLE
     Route: 041
     Dates: start: 20240919, end: 20240919

REACTIONS (2)
  - Transaminases increased [Recovering/Resolving]
  - Off label use [Unknown]

NARRATIVE: CASE EVENT DATE: 20240920
